FAERS Safety Report 16235071 (Version 1)
Quarter: 2019Q2

REPORT INFORMATION
  Report Type: Spontaneous
  Country: CA (occurrence: CA)
  Receive Date: 20190424
  Receipt Date: 20190424
  Transmission Date: 20190711
  Serious: Yes (Hospitalization)
  Sender: FDA-Public Use
  Company Number: CA-MYLANLABS-2019M1037733

PATIENT
  Sex: Male
  Weight: 109 kg

DRUGS (1)
  1. VALPROIC ACID. [Suspect]
     Active Substance: VALPROIC ACID
     Indication: BIPOLAR DISORDER
     Dosage: 1 DOSAGE FORM, BID (ONE CAPSULE IN THE MORNING AND ONE IN THE EVENING)
     Route: 048
     Dates: start: 201808

REACTIONS (7)
  - Seizure [Recovering/Resolving]
  - Musculoskeletal discomfort [Not Recovered/Not Resolved]
  - Off label use [Recovered/Resolved]
  - Movement disorder [Recovering/Resolving]
  - Weight decreased [Recovering/Resolving]
  - Swelling face [Recovering/Resolving]
  - Pyrexia [Recovering/Resolving]
